FAERS Safety Report 21339216 (Version 1)
Quarter: 2022Q3

REPORT INFORMATION
  Report Type: Spontaneous
  Country: US (occurrence: US)
  Receive Date: 20220915
  Receipt Date: 20220915
  Transmission Date: 20221027
  Serious: No
  Sender: FDA-Public Use
  Company Number: US-BAUSCHBL-2022BNL000228

PATIENT
  Age: 65 Year
  Sex: Female
  Weight: 104.42 kg

DRUGS (7)
  1. PROLENSA [Suspect]
     Active Substance: BROMFENAC SODIUM
     Indication: Preoperative care
     Route: 047
     Dates: start: 20220907
  2. BESIVANCE [Suspect]
     Active Substance: BESIFLOXACIN
     Indication: Preoperative care
     Route: 047
     Dates: start: 20220907
  3. LOTEMAX SM [Suspect]
     Active Substance: LOTEPREDNOL ETABONATE
     Indication: Preoperative care
     Route: 047
     Dates: start: 20220907
  4. INSULIN NOS [Concomitant]
     Active Substance: INSULIN NOS
     Indication: Product used for unknown indication
     Route: 065
  5. CARVEDILOL [Concomitant]
     Active Substance: CARVEDILOL
     Indication: Product used for unknown indication
     Route: 065
  6. RANEXA [Concomitant]
     Active Substance: RANOLAZINE
     Indication: Product used for unknown indication
     Route: 065
  7. LISINOPRIL [Concomitant]
     Active Substance: LISINOPRIL
     Indication: Product used for unknown indication
     Route: 065

REACTIONS (4)
  - Sinus pain [Not Recovered/Not Resolved]
  - Inappropriate schedule of product administration [Unknown]
  - Product use in unapproved indication [Unknown]
  - Product prescribing issue [Unknown]

NARRATIVE: CASE EVENT DATE: 20220907
